FAERS Safety Report 20961898 (Version 2)
Quarter: 2022Q3

REPORT INFORMATION
  Report Type: Report from Study
  Country: US (occurrence: None)
  Receive Date: 20220615
  Receipt Date: 20220713
  Transmission Date: 20221027
  Serious: Yes (Hospitalization)
  Sender: FDA-Public Use
  Company Number: US-ROCHE-3115649

PATIENT
  Age: 70 Year
  Sex: Female
  Weight: 66.7 kg

DRUGS (5)
  1. VENETOCLAX [Suspect]
     Active Substance: VENETOCLAX
     Indication: Castleman^s disease
     Route: 065
     Dates: start: 20210426
  2. OBINUTUZUMAB [Suspect]
     Active Substance: OBINUTUZUMAB
     Indication: Castleman^s disease
     Route: 065
     Dates: start: 20210301
  3. IBRUTINIB [Suspect]
     Active Substance: IBRUTINIB
     Indication: Castleman^s disease
     Route: 065
     Dates: start: 20210301
  4. ALBUTEROL [Concomitant]
     Active Substance: ALBUTEROL
  5. HYDROCHLOROTHIAZIDE [Concomitant]
     Active Substance: HYDROCHLOROTHIAZIDE

REACTIONS (1)
  - Pneumonia bacterial [Recovered/Resolved]

NARRATIVE: CASE EVENT DATE: 20220114
